FAERS Safety Report 6566327-2 (Version None)
Quarter: 2010Q1

REPORT INFORMATION
  Report Type: 
  Country: None (occurrence: None)
  Receive Date: 20100202
  Receipt Date: 20100122
  Transmission Date: 20100710
  Serious: Yes (Hospitalization)
  Sender: FDA-Public Use
  Company Number: US-PERRIGO-10US006517

PATIENT
  Age: 20 Year
  Sex: Female

DRUGS (1)
  1. IBUPROFEN RX 600 MG 167 [Suspect]
     Indication: AFTERBIRTH PAIN
     Dosage: 600 MG, SINGLE
     Route: 048

REACTIONS (5)
  - ANAPHYLACTIC REACTION [None]
  - DYSPNOEA [None]
  - KOUNIS SYNDROME [None]
  - MYOCARDIAL INFARCTION [None]
  - RASH MACULO-PAPULAR [None]
